FAERS Safety Report 7379843-0 (Version None)
Quarter: 2011Q1

REPORT INFORMATION
  Report Type: 
  Country: None (occurrence: None)
  Receive Date: 20110318
  Receipt Date: 20110309
  Transmission Date: 20110831
  Serious: Yes (Other)
  Sender: FDA-Public Use
  Company Number: GER/UKI/11/0017689

PATIENT
  Age: 37 Year
  Sex: Female

DRUGS (4)
  1. LAMOTRIGINE [Suspect]
     Indication: FRONTAL LOBE EPILEPSY
     Dosage: 450 MG, 1 IN 1 D
  2. PHENYTOIN [Suspect]
     Indication: FRONTAL LOBE EPILEPSY
     Dosage: 375 MG, 1 IN 1 D
  3. RUFINAMIDE (RUFINAMIDE) [Concomitant]
  4. CLONAZEPAM [Concomitant]

REACTIONS (8)
  - DIZZINESS [None]
  - DRUG INTERACTION [None]
  - CONVULSION [None]
  - ANTICONVULSANT DRUG LEVEL INCREASED [None]
  - DIPLOPIA [None]
  - BALANCE DISORDER [None]
  - ANTICONVULSANT DRUG LEVEL DECREASED [None]
  - NEUROTOXICITY [None]
